APPROVED DRUG PRODUCT: DESVENLAFAXINE SUCCINATE
Active Ingredient: DESVENLAFAXINE SUCCINATE
Strength: EQ 100MG BASE
Dosage Form/Route: TABLET, EXTENDED RELEASE;ORAL
Application: A204172 | Product #002 | TE Code: AB
Applicant: LUPIN LTD
Approved: Jun 29, 2015 | RLD: No | RS: No | Type: RX